FAERS Safety Report 11233799 (Version 2)
Quarter: 2015Q3

REPORT INFORMATION
  Report Type: Report from Study
  Country: TW (occurrence: TW)
  Receive Date: 20150702
  Receipt Date: 20150706
  Transmission Date: 20151125
  Serious: Yes (Hospitalization, Other)
  Sender: FDA-Public Use
  Company Number: PHHY2015TW077577

PATIENT
  Age: 82 Year
  Sex: Male
  Weight: 57.8 kg

DRUGS (6)
  1. ZOLEDRONATE [Suspect]
     Active Substance: ZOLEDRONIC ACID
     Indication: PLASMA CELL MYELOMA
     Dosage: 3 MG, UNK
     Route: 042
     Dates: start: 20150605, end: 20150605
  2. MUCOSOLVAN [Concomitant]
     Active Substance: AMBROXOL\CLENBUTEROL
     Indication: PNEUMONIA
     Dosage: 1 OT, BID
     Route: 065
     Dates: start: 20150629
  3. AUGMENTINE [Concomitant]
     Active Substance: AMOXICILLIN\CLAVULANATE POTASSIUM
     Indication: PNEUMONIA
     Dosage: 1 OT, BID
     Route: 065
     Dates: start: 20150629
  4. PHYLLOCONTIN [Concomitant]
     Active Substance: AMINOPHYLLINE
     Indication: BRONCHITIS
     Dosage: 1 OT, QD
     Route: 065
     Dates: start: 20150629
  5. AMPICILLIN [Concomitant]
     Active Substance: AMPICILLIN
     Indication: PNEUMONIA
     Dosage: 1000 MG, Q12M
     Route: 042
     Dates: start: 20150624
  6. MAGNESIUM OXIDE. [Concomitant]
     Active Substance: MAGNESIUM OXIDE
     Indication: CONSTIPATION
     Dosage: 1 TID
     Route: 048
     Dates: start: 20150624

REACTIONS (9)
  - Haemoglobin decreased [Unknown]
  - White blood cell count decreased [Unknown]
  - Platelet count decreased [Unknown]
  - Pneumonia [Recovering/Resolving]
  - Aspartate aminotransferase increased [Unknown]
  - C-reactive protein increased [Unknown]
  - Blood creatinine increased [Unknown]
  - Cough [Not Recovered/Not Resolved]
  - Pyrexia [Not Recovered/Not Resolved]

NARRATIVE: CASE EVENT DATE: 20150624
